FAERS Safety Report 5923358-0 (Version None)
Quarter: 2008Q4

REPORT INFORMATION
  Report Type: 
  Country: None (occurrence: None)
  Receive Date: 20081020
  Receipt Date: 20081009
  Transmission Date: 20090506
  Serious: Yes (Other)
  Sender: FDA-Public Use
  Company Number: US-ROCHE-580782

PATIENT
  Age: 60 Year
  Sex: Female

DRUGS (4)
  1. BONIVA [Suspect]
     Indication: OSTEOPENIA
     Route: 065
     Dates: start: 20070202, end: 20070701
  2. BONIVA [Suspect]
     Route: 065
     Dates: end: 20080904
  3. SYNTHROID [Concomitant]
  4. LISINOPRIL [Concomitant]

REACTIONS (1)
  - OSTEONECROSIS [None]
